FAERS Safety Report 4397996-3 (Version None)
Quarter: 2004Q3

REPORT INFORMATION
  Report Type: 
  Country: None (occurrence: None)
  Receive Date: 20040715
  Receipt Date: 20040708
  Transmission Date: 20050211
  Serious: Yes (Other)
  Sender: FDA-Public Use
  Company Number: PHBS2004DE09293

PATIENT
  Age: 41 Year
  Sex: Female

DRUGS (2)
  1. BROMOCRIPTINE MESYLATE [Suspect]
     Indication: AMENORRHOEA
     Dosage: 10 MG/DAY
  2. AMISULPRIDE [Concomitant]
     Indication: PSYCHOTIC DISORDER
     Dosage: 25 MG/DAY

REACTIONS (1)
  - PSYCHOTIC DISORDER [None]
